FAERS Safety Report 10190154 (Version 1)
Quarter: 2014Q2

REPORT INFORMATION
  Report Type: Spontaneous
  Country: US (occurrence: US)
  Receive Date: 20140522
  Receipt Date: 20140522
  Transmission Date: 20141212
  Serious: No
  Sender: FDA-Public Use
  Company Number: US-PFIZER INC-2014141181

PATIENT
  Age: 65 Year
  Sex: 0

DRUGS (6)
  1. CELEBREX [Suspect]
     Dosage: UNK
  2. VERAPAMIL HCL [Suspect]
     Dosage: UNK
  3. VICODIN [Suspect]
     Dosage: UNK
  4. ADVAIR [Suspect]
     Dosage: UNK
  5. METFORMIN HCL [Suspect]
     Dosage: UNK
  6. MONTEKAST [Suspect]
     Dosage: UNK

REACTIONS (1)
  - Drug hypersensitivity [Unknown]
